FAERS Safety Report 10035761 (Version 3)
Quarter: 2014Q2

REPORT INFORMATION
  Report Type: Report from Study
  Country: JP (occurrence: JP)
  Receive Date: 20140325
  Receipt Date: 20140521
  Transmission Date: 20141212
  Serious: Yes (Death)
  Sender: FDA-Public Use
  Company Number: JP-GLAXOSMITHKLINE-B0881605A

PATIENT
  Age: 51 Year
  Sex: Male

DRUGS (15)
  1. VOTRIENT 200MG [Suspect]
     Indication: MALIGNANT FIBROUS HISTIOCYTOMA
     Dosage: 800MG PER DAY
     Route: 048
     Dates: start: 20130215, end: 20130228
  2. VOTRIENT 200MG [Suspect]
     Indication: MALIGNANT FIBROUS HISTIOCYTOMA
     Dosage: 800MG PER DAY
     Route: 048
     Dates: start: 20130318, end: 20130331
  3. VOTRIENT 200MG [Suspect]
     Indication: MALIGNANT FIBROUS HISTIOCYTOMA
     Dosage: 200MG PER DAY
     Route: 048
     Dates: start: 20130408, end: 20130421
  4. VOTRIENT 200MG [Suspect]
     Indication: MALIGNANT FIBROUS HISTIOCYTOMA
     Dosage: 200MG PER DAY
     Route: 048
     Dates: start: 20130520, end: 20130707
  5. VOTRIENT 200MG [Suspect]
     Indication: MALIGNANT FIBROUS HISTIOCYTOMA
     Dosage: 400MG PER DAY
     Route: 048
     Dates: start: 20131107, end: 20131126
  6. VOTRIENT 200MG [Suspect]
     Indication: MALIGNANT FIBROUS HISTIOCYTOMA
     Dosage: 400MG PER DAY
     Route: 048
     Dates: start: 20131130, end: 20131209
  7. FAMOTIDINE D [Concomitant]
     Route: 048
  8. METHYCOBAL [Concomitant]
     Route: 065
  9. REBAMIPIDE [Concomitant]
     Route: 065
  10. LOXOPROFEN [Concomitant]
     Route: 065
  11. MINOCYCLINE HYDROCHLORIDE [Concomitant]
     Indication: POSTOPERATIVE WOUND INFECTION
     Route: 065
  12. MEIACT [Concomitant]
     Indication: POSTOPERATIVE WOUND INFECTION
     Route: 048
  13. RIVOTRIL [Concomitant]
     Route: 048
  14. OXYCONTIN [Concomitant]
     Route: 048
  15. LYRICA [Concomitant]
     Route: 048

REACTIONS (3)
  - Post procedural haemorrhage [Fatal]
  - Impaired healing [Fatal]
  - Palmar-plantar erythrodysaesthesia syndrome [Recovered/Resolved]
